FAERS Safety Report 11038236 (Version 2)
Quarter: 2015Q2

REPORT INFORMATION
  Report Type: Spontaneous
  Country: FI (occurrence: FI)
  Receive Date: 20150416
  Receipt Date: 20150506
  Transmission Date: 20150821
  Serious: Yes (Other)
  Sender: FDA-Public Use
  Company Number: PHHY2015FI044055

PATIENT
  Age: 51 Year
  Sex: Female

DRUGS (1)
  1. DIOVAN [Suspect]
     Active Substance: VALSARTAN
     Indication: BLOOD PRESSURE ABNORMAL
     Dosage: UNK
     Route: 065
     Dates: start: 201503, end: 20150410

REACTIONS (5)
  - Lichen planus [Unknown]
  - Rash generalised [Unknown]
  - Pruritus [Unknown]
  - Erythema [Unknown]
  - Skin plaque [Unknown]

NARRATIVE: CASE EVENT DATE: 201503
